FAERS Safety Report 9995549 (Version 2)
Quarter: 2014Q1

REPORT INFORMATION
  Report Type: Spontaneous
  Country: PT (occurrence: PT)
  Receive Date: 20140311
  Receipt Date: 20140324
  Transmission Date: 20141002
  Serious: Yes (Life-Threatening)
  Sender: FDA-Public Use
  Company Number: PT-TEVA-467213ISR

PATIENT
  Age: 65 Year
  Sex: Female
  Weight: 46 kg

DRUGS (5)
  1. OXALIPLATINA TEVA [Suspect]
     Indication: COLON CANCER METASTATIC
     Dosage: 3H INFUSION, INFUSION RATE 144ML/H, CONCENTRATION OF 0.65MG/ML SOLUTION
     Route: 042
     Dates: start: 20140218
  2. OXALIPLATINA TEVA [Suspect]
     Route: 042
     Dates: start: 20140311
  3. FORTECORTIN [Concomitant]
     Indication: PREMEDICATION
     Route: 048
     Dates: start: 20140218
  4. FORTECORTIN [Concomitant]
     Indication: PREMEDICATION
     Route: 048
     Dates: start: 20140218
  5. GRANISSETROM ACTAVIS [Concomitant]
     Indication: PREMEDICATION
     Route: 048
     Dates: start: 20140218

REACTIONS (4)
  - Hypersensitivity [Recovered/Resolved]
  - Dysphonia [Recovered/Resolved]
  - Dysphonia [Recovered/Resolved]
  - Off label use [Unknown]
